FAERS Safety Report 6914609-4 (Version None)
Quarter: 2010Q3

REPORT INFORMATION
  Report Type: 
  Country: None (occurrence: None)
  Receive Date: 20100804
  Receipt Date: 20100804
  Transmission Date: 20110219
  Serious: Yes (Other)
  Sender: FDA-Public Use
  Company Number: None

PATIENT
  Age: 56 Year
  Sex: Male
  Weight: 83.6 kg

DRUGS (1)
  1. CHANTIX [Suspect]
     Indication: SMOKING CESSATION THERAPY
     Dosage: 1MG BID ORAL
     Route: 048
     Dates: start: 20100408, end: 20100606

REACTIONS (7)
  - DYSPNOEA [None]
  - POSTICTAL STATE [None]
  - RESPIRATORY ARREST [None]
  - SKIN DISCOLOURATION [None]
  - TONGUE BITING [None]
  - TONIC CONVULSION [None]
  - URINARY INCONTINENCE [None]
